FAERS Safety Report 19929480 (Version 1)
Quarter: 2021Q4

REPORT INFORMATION
  Report Type: Spontaneous
  Country: US (occurrence: US)
  Receive Date: 20211007
  Receipt Date: 20211007
  Transmission Date: 20220303
  Serious: Yes (Other)
  Sender: FDA-Public Use
  Company Number: US-PFIZER INC-202101300730

PATIENT
  Sex: Female

DRUGS (2)
  1. TAPAZOLE [Suspect]
     Active Substance: METHIMAZOLE
     Dosage: 10 MG
  2. TAPAZOLE [Suspect]
     Active Substance: METHIMAZOLE
     Dosage: 5 MG

REACTIONS (2)
  - Seizure [Unknown]
  - Illness [Unknown]
